FAERS Safety Report 8322555-7 (Version None)
Quarter: 2012Q2

REPORT INFORMATION
  Report Type: 
  Country: None (occurrence: None)
  Receive Date: 20120430
  Receipt Date: 20100216
  Transmission Date: 20120825
  Serious: No
  Sender: FDA-Public Use
  Company Number: US-TEVA-2010000899

PATIENT
  Sex: Male
  Weight: 149.82 kg

DRUGS (5)
  1. CELEBREX [Concomitant]
     Dates: start: 20100201
  2. METAFOLIN [Concomitant]
  3. NUVIGIL [Suspect]
     Route: 048
  4. NUVIGIL [Suspect]
     Indication: SLEEP APNOEA SYNDROME
     Route: 048
     Dates: start: 20091201
  5. ALPRAZOLAM [Concomitant]
     Dates: start: 20090101

REACTIONS (3)
  - DRUG INEFFECTIVE [None]
  - ANXIETY [None]
  - FEELING JITTERY [None]
